FAERS Safety Report 9093445 (Version 2)
Quarter: 2013Q3

REPORT INFORMATION
  Report Type: Report from Study
  Country: US (occurrence: US)
  Receive Date: 20130218
  Receipt Date: 20130820
  Transmission Date: 20140515
  Serious: Yes (Hospitalization)
  Sender: FDA-Public Use
  Company Number: US-ELI_LILLY_AND_COMPANY-US201302003269

PATIENT
  Sex: Female

DRUGS (4)
  1. TERIPARATIDE [Suspect]
     Dosage: UNK, QD
  2. PREDNISONE [Concomitant]
     Dosage: 20 MG, QD
  3. ALBUTEROL                          /00139501/ [Concomitant]
  4. SINGULAIR [Concomitant]

REACTIONS (1)
  - Influenza [Recovered/Resolved]
